FAERS Safety Report 13011036 (Version 2)
Quarter: 2016Q4

REPORT INFORMATION
  Report Type: Spontaneous
  Country: JP (occurrence: JP)
  Receive Date: 20161208
  Receipt Date: 20161229
  Transmission Date: 20170207
  Serious: No
  Sender: FDA-Public Use
  Company Number: JP-ASTRAZENECA-2016SF29119

PATIENT
  Age: 70 Year
  Sex: Female

DRUGS (2)
  1. INSULIN [Concomitant]
     Active Substance: INSULIN NOS
     Dosage: 30 IU, NUMBER OF SEPARATE DOSAGES UNKNOWN
     Route: 065
  2. FORXIGA [Suspect]
     Active Substance: DAPAGLIFLOZIN
     Indication: DIABETES MELLITUS
     Route: 048
     Dates: end: 201611

REACTIONS (2)
  - Dehydration [Unknown]
  - Abdominal pain [Unknown]

NARRATIVE: CASE EVENT DATE: 201611
